FAERS Safety Report 10497710 (Version 1)
Quarter: 2014Q4

REPORT INFORMATION
  Report Type: Spontaneous
  Country: US (occurrence: US)
  Receive Date: 20141006
  Receipt Date: 20141006
  Transmission Date: 20150528
  Serious: Yes (Disabling)
  Sender: FDA-Public Use
  Company Number: US-PFIZER INC-2014270760

PATIENT
  Age: 54 Year
  Sex: Male
  Weight: 84 kg

DRUGS (3)
  1. LEXAPRO [Concomitant]
     Active Substance: ESCITALOPRAM OXALATE
     Indication: ANXIETY
     Dosage: 20 MG, 1X/DAY
     Route: 048
  2. LYRICA [Suspect]
     Active Substance: PREGABALIN
     Indication: OCCIPITAL NEURALGIA
     Dosage: 300 MG, 2X/DAY
     Route: 048
     Dates: start: 2003
  3. PERCOCET [Concomitant]
     Active Substance: ACETAMINOPHEN\OXYCODONE HYDROCHLORIDE
     Indication: OCCIPITAL NEURALGIA
     Dosage: 10MG/325MG,6X/DAY((MENTIONED AS EVERY 4 HOURS)
     Route: 048

REACTIONS (1)
  - Occipital neuralgia [Unknown]

NARRATIVE: CASE EVENT DATE: 200506
